FAERS Safety Report 16011172 (Version 1)
Quarter: 2019Q1

REPORT INFORMATION
  Report Type: Report from Study
  Country: IT (occurrence: IT)
  Receive Date: 20190227
  Receipt Date: 20190227
  Transmission Date: 20190418
  Serious: Yes (Hospitalization)
  Sender: FDA-Public Use
  Company Number: IT-PFIZER INC-2019081775

PATIENT
  Age: 22 Year

DRUGS (2)
  1. XANAX [Suspect]
     Active Substance: ALPRAZOLAM
     Indication: AFFECTIVE DISORDER
     Dosage: 10 DF, UNK
     Route: 048
     Dates: start: 20190114, end: 20190114
  2. SONGAR [Suspect]
     Active Substance: TRIAZOLAM
     Indication: AFFECTIVE DISORDER
     Dosage: 19 ML, UNK
     Route: 048
     Dates: start: 20190114, end: 20190114

REACTIONS (2)
  - Loss of consciousness [Not Recovered/Not Resolved]
  - Sopor [Not Recovered/Not Resolved]

NARRATIVE: CASE EVENT DATE: 20190115
